FAERS Safety Report 5334164-2 (Version None)
Quarter: 2007Q2

REPORT INFORMATION
  Report Type: 
  Country: None (occurrence: None)
  Receive Date: 20070523
  Receipt Date: 20070523
  Transmission Date: 20071010
  Serious: Yes (Hospitalization)
  Sender: FDA-Public Use
  Company Number: None

PATIENT
  Age: 71 Year
  Sex: Male
  Weight: 115.5 kg

DRUGS (1)
  1. PROCRIT [Suspect]
     Indication: MULTIPLE MYELOMA
     Dosage: 80,000 U SQ QWEEK
     Route: 058
     Dates: start: 20070515

REACTIONS (3)
  - BACK PAIN [None]
  - CONDITION AGGRAVATED [None]
  - URINARY INCONTINENCE [None]
